FAERS Safety Report 12531719 (Version 4)
Quarter: 2018Q2

REPORT INFORMATION
  Report Type: Spontaneous
  Country: TR (occurrence: TR)
  Receive Date: 20160706
  Receipt Date: 20180530
  Transmission Date: 20180711
  Serious: Yes (Life-Threatening, Hospitalization, Other)
  Sender: FDA-Public Use
  Company Number: TR-ABBVIE-16P-161-1668599-00

PATIENT
  Age: 24 Year
  Sex: Female
  Weight: 68 kg

DRUGS (4)
  1. VALPROIC ACID. [Suspect]
     Active Substance: VALPROIC ACID
     Indication: SUICIDE ATTEMPT
     Route: 065
  2. OLANZAPINE. [Concomitant]
     Active Substance: OLANZAPINE
     Indication: PRODUCT USED FOR UNKNOWN INDICATION
  3. ESCITALOPRAM [Concomitant]
     Active Substance: ESCITALOPRAM OXALATE
     Indication: PRODUCT USED FOR UNKNOWN INDICATION
  4. FLUOXETINE [Concomitant]
     Active Substance: FLUOXETINE HYDROCHLORIDE
     Indication: PRODUCT USED FOR UNKNOWN INDICATION

REACTIONS (14)
  - Toxicity to various agents [Unknown]
  - Altered state of consciousness [Unknown]
  - Condition aggravated [Unknown]
  - Leukopenia [Unknown]
  - Completed suicide [Unknown]
  - Coma [Unknown]
  - Respiratory depression [Unknown]
  - Acidosis [Unknown]
  - Tachycardia [Unknown]
  - Somnolence [Unknown]
  - Hypercapnia [Unknown]
  - Loss of consciousness [Unknown]
  - Hypernatraemia [Unknown]
  - Hypocalcaemia [Unknown]
